FAERS Safety Report 9782395 (Version 3)
Quarter: 2014Q3

REPORT INFORMATION
  Report Type: Report from Study
  Country: SG (occurrence: SG)
  Receive Date: 20131226
  Receipt Date: 20140724
  Transmission Date: 20150326
  Serious: Yes (Hospitalization)
  Sender: FDA-Public Use
  Company Number: PHHY2012SG026217

PATIENT
  Age: 61 Year
  Sex: Male

DRUGS (4)
  1. IRON [Concomitant]
     Active Substance: IRON
  2. GLIVEC [Suspect]
     Active Substance: IMATINIB MESYLATE
     Indication: GASTROINTESTINAL STROMAL TUMOUR
     Dosage: 400 MG, DAILY
     Dates: start: 20090728
  3. EPOETIN BETA [Concomitant]
     Active Substance: ERYTHROPOIETIN
  4. FERINJECT [Concomitant]
     Active Substance: FERRIC CARBOXYMALTOSE

REACTIONS (1)
  - Renal failure chronic [Not Recovered/Not Resolved]

NARRATIVE: CASE EVENT DATE: 20130812
